FAERS Safety Report 16146168 (Version 3)
Quarter: 2019Q2

REPORT INFORMATION
  Report Type: Report from Study
  Country: US (occurrence: US)
  Receive Date: 20190402
  Receipt Date: 20190530
  Transmission Date: 20190711
  Serious: Yes (Other)
  Sender: FDA-Public Use
  Company Number: US-ROCHE-2193176

PATIENT
  Age: 62 Year
  Sex: Female
  Weight: 87.17 kg

DRUGS (4)
  1. SOLU-MEDROL [Suspect]
     Active Substance: METHYLPREDNISOLONE SODIUM SUCCINATE
     Indication: PRODUCT USED FOR UNKNOWN INDICATION
     Route: 065
  2. OCREVUS [Suspect]
     Active Substance: OCRELIZUMAB
     Indication: RELAPSING-REMITTING MULTIPLE SCLEROSIS
     Route: 042
     Dates: start: 20180928
  3. OCREVUS [Suspect]
     Active Substance: OCRELIZUMAB
     Dosage: 2ND HALF DOSE 12/OCT/2018
     Route: 065
  4. CYMBALTA [Concomitant]
     Active Substance: DULOXETINE HYDROCHLORIDE

REACTIONS (13)
  - Chest discomfort [Recovered/Resolved]
  - Oesophageal pain [Recovered/Resolved]
  - Oropharyngeal pain [Not Recovered/Not Resolved]
  - Sinusitis [Recovered/Resolved]
  - Flushing [Recovered/Resolved]
  - Dyspnoea [Recovered/Resolved]
  - Pneumonia [Recovered/Resolved]
  - Pruritus [Recovered/Resolved]
  - Burning sensation [Recovered/Resolved]
  - Influenza [Recovered/Resolved]
  - Heart rate increased [Recovered/Resolved]
  - Pyrexia [Recovering/Resolving]
  - Immunodeficiency [Recovered/Resolved]

NARRATIVE: CASE EVENT DATE: 20180928
